FAERS Safety Report 6058856-5 (Version None)
Quarter: 2009Q1

REPORT INFORMATION
  Report Type: 
  Country: None (occurrence: None)
  Receive Date: 20090130
  Receipt Date: 20090116
  Transmission Date: 20090719
  Serious: Yes (Hospitalization)
  Sender: FDA-Public Use
  Company Number: FR-GENENTECH-276013

PATIENT
  Age: 58 Year
  Sex: Female

DRUGS (4)
  1. RITUXIMAB [Suspect]
     Indication: LYMPHOMA
     Dosage: 603.75 MG, UNK
     Route: 042
     Dates: start: 20080527
  2. RITUXIMAB [Suspect]
     Dosage: 566 MG, UNK
     Dates: start: 20081215
  3. CARBOPLATIN [Concomitant]
     Indication: LYMPHOMA
     Dosage: UNK
     Dates: start: 20080527
  4. CYTARABINE [Concomitant]
     Indication: LYMPHOMA
     Dosage: UNK
     Dates: start: 20080527

REACTIONS (2)
  - GASTROINTESTINAL DISORDER [None]
  - HAEMATOTOXICITY [None]
